FAERS Safety Report 16940277 (Version 1)
Quarter: 2019Q4

REPORT INFORMATION
  Report Type: Spontaneous
  Country: JP (occurrence: JP)
  Receive Date: 20191021
  Receipt Date: 20191021
  Transmission Date: 20200122
  Serious: Yes (Other)
  Sender: FDA-Public Use
  Company Number: JP-ADVANZ PHARMA-201910001244

PATIENT

DRUGS (2)
  1. VEGAMOX [Suspect]
     Active Substance: MOXIFLOXACIN HYDROCHLORIDE
     Indication: ANTIBIOTIC PROPHYLAXIS
     Dosage: UNK
     Route: 065
     Dates: start: 2019
  2. HYDROXYCHLOROQUINE SULFATE (AUTHORIZED GENERIC),PLAQUENIL [Suspect]
     Active Substance: HYDROXYCHLOROQUINE SULFATE
     Indication: SYSTEMIC LUPUS ERYTHEMATOSUS
     Dosage: UNK
     Route: 048
     Dates: start: 201907

REACTIONS (10)
  - Nausea [Unknown]
  - Abdominal pain [Unknown]
  - Anaphylactic reaction [Unknown]
  - Vomiting [Unknown]
  - Eye irritation [Unknown]
  - Erythema of eyelid [Unknown]
  - Dyspnoea [Unknown]
  - Swelling of eyelid [Unknown]
  - Abnormal sensation in eye [Unknown]
  - Cough [Unknown]

NARRATIVE: CASE EVENT DATE: 2019
